FAERS Safety Report 20566780 (Version 2)
Quarter: 2022Q1

REPORT INFORMATION
  Report Type: Spontaneous
  Country: PT (occurrence: None)
  Receive Date: 20220308
  Receipt Date: 20220309
  Transmission Date: 20220423
  Serious: Yes (Other)
  Sender: FDA-Public Use
  Company Number: 2022A090547

PATIENT
  Age: 79 Year
  Sex: Male

DRUGS (3)
  1. TAGRISSO [Suspect]
     Active Substance: OSIMERTINIB
     Indication: Lung adenocarcinoma
     Dosage: 1 - EVERY CYCLE80.0MG UNKNOWN
     Route: 048
     Dates: start: 20220114, end: 20220201
  2. TAGRISSO [Suspect]
     Active Substance: OSIMERTINIB
     Indication: Lung adenocarcinoma
     Dosage: 1 - EVERY CYCLE40.0MG UNKNOWN
     Route: 048
  3. RIVAROXABANO [Concomitant]
     Route: 065
     Dates: start: 202112

REACTIONS (2)
  - Skin reaction [Recovered/Resolved]
  - Rash pruritic [Recovered/Resolved]

NARRATIVE: CASE EVENT DATE: 20220114
